FAERS Safety Report 7028882-8 (Version None)
Quarter: 2010Q3

REPORT INFORMATION
  Report Type: 
  Country: None (occurrence: None)
  Receive Date: 20100907
  Receipt Date: 20100824
  Transmission Date: 20110219
  Serious: Yes (Hospitalization, Other)
  Sender: FDA-Public Use
  Company Number: AEUSA201000190

PATIENT
  Age: 82 Year
  Sex: Female

DRUGS (11)
  1. PROLASTIN-C [Suspect]
     Indication: ALPHA-1 ANTI-TRYPSIN DEFICIENCY
     Dosage: QOW; IV
     Route: 042
     Dates: start: 20100511, end: 20100617
  2. DUONEB (CON.) [Concomitant]
  3. DYAZIDE (CON.) [Concomitant]
  4. ALTACE (CON.) [Concomitant]
  5. CARDIZEM /00489702/ (CON.) [Concomitant]
  6. LANOXIN (CON.) [Concomitant]
  7. KLOR-CON (CON.) [Concomitant]
  8. BENADRYL /00000402/ (CON.) [Concomitant]
  9. DIAZEPAM (CON.) [Concomitant]
  10. ADVAIR (CON.) [Concomitant]
  11. CHARCOAL, ACTIVATED (CON.) [Concomitant]

REACTIONS (6)
  - ANAPHYLACTOID REACTION [None]
  - DRUG HYPERSENSITIVITY [None]
  - INFUSION RELATED REACTION [None]
  - PRODUCT FORMULATION ISSUE [None]
  - REACTION TO DRUG EXCIPIENTS [None]
  - SELF-MEDICATION [None]
